FAERS Safety Report 7777667-3 (Version None)
Quarter: 2011Q3

REPORT INFORMATION
  Report Type: 
  Country: None (occurrence: None)
  Receive Date: 20110926
  Receipt Date: 20110920
  Transmission Date: 20111222
  Serious: Yes (Other)
  Sender: FDA-Public Use
  Company Number: SE-SANOFI-AVENTIS-2011SA061691

PATIENT
  Age: 78 Year
  Sex: Female
  Weight: 63 kg

DRUGS (7)
  1. BLINDED THERAPY [Suspect]
     Indication: ACUTE CORONARY SYNDROME
     Route: 065
     Dates: start: 20110822, end: 20110912
  2. RAMIPRIL [Concomitant]
     Dates: start: 20100610
  3. OMEPRAZOLE [Concomitant]
     Dates: start: 20100610
  4. SIMVASTATIN [Concomitant]
     Dates: start: 20100610
  5. CLOPIDOGREL BISULFATE [Suspect]
     Route: 065
     Dates: start: 20110822, end: 20110912
  6. METOPROLOL TARTRATE [Concomitant]
     Dates: start: 20100610
  7. ASPIRIN [Concomitant]

REACTIONS (1)
  - EOSINOPHILIA [None]
